FAERS Safety Report 7971767-0 (Version None)
Quarter: 2011Q4

REPORT INFORMATION
  Report Type: 
  Country: None (occurrence: None)
  Receive Date: 20111209
  Receipt Date: 20111209
  Transmission Date: 20120403
  Serious: No
  Sender: FDA-Public Use
  Company Number: None

PATIENT

DRUGS (2)
  1. DERMA-SMOOTHE/FS [Suspect]
  2. FLUOCINOLONE ACETONIDE [Suspect]

REACTIONS (1)
  - PRODUCT LABEL ISSUE [None]
